FAERS Safety Report 9993076 (Version 1)
Quarter: 2014Q1

REPORT INFORMATION
  Report Type: Report from Study
  Country: US (occurrence: US)
  Receive Date: 20140310
  Receipt Date: 20140310
  Transmission Date: 20141002
  Serious: Yes (Hospitalization)
  Sender: FDA-Public Use
  Company Number: US-ABBVIE-13P-163-1129590-00

PATIENT
  Age: 33 Year
  Sex: Female
  Weight: 99.88 kg

DRUGS (6)
  1. LUPRON DEPOT [Suspect]
     Indication: PNEUMOTHORAX
     Route: 030
     Dates: start: 201202
  2. NORETHINDRONE [Concomitant]
     Indication: PRODUCT USED FOR UNKNOWN INDICATION
  3. MULTIVITAMINS [Concomitant]
     Indication: PRODUCT USED FOR UNKNOWN INDICATION
  4. XANAX [Concomitant]
     Indication: PRODUCT USED FOR UNKNOWN INDICATION
  5. PERCOCET [Concomitant]
     Indication: PRODUCT USED FOR UNKNOWN INDICATION
     Dosage: 5/325
  6. MIRENA [Concomitant]
     Indication: PRODUCT USED FOR UNKNOWN INDICATION

REACTIONS (2)
  - Dyspnoea [Recovered/Resolved]
  - Chest pain [Recovered/Resolved]
